FAERS Safety Report 20796161 (Version 7)
Quarter: 2025Q1

REPORT INFORMATION
  Report Type: Other
  Country: CA (occurrence: CA)
  Receive Date: 20220506
  Receipt Date: 20250107
  Transmission Date: 20250408
  Serious: Yes (Other)
  Sender: TOLMAR
  Company Number: CA-TOLMAR, INC.-22CA033024

PATIENT
  Age: 71 Year
  Sex: Male

DRUGS (8)
  1. ELIGARD [Suspect]
     Active Substance: LEUPROLIDE ACETATE
     Indication: Prostate cancer
     Dosage: 45 MILLIGRAM, Q 6 MONTH
     Route: 058
     Dates: start: 20220216
  2. ELIGARD [Suspect]
     Active Substance: LEUPROLIDE ACETATE
     Dosage: 45 MILLIGRAM, Q 6 MONTH
     Route: 058
     Dates: start: 20180816
  3. ELIGARD [Suspect]
     Active Substance: LEUPROLIDE ACETATE
     Dosage: 45 MILLIGRAM, Q 6 MONTH
     Route: 058
     Dates: start: 20220803
  4. ELIGARD [Suspect]
     Active Substance: LEUPROLIDE ACETATE
     Dosage: 45 MILLIGRAM, Q 6 MONTH
     Route: 058
     Dates: start: 20230120
  5. ELIGARD [Suspect]
     Active Substance: LEUPROLIDE ACETATE
     Dosage: 45 MILLIGRAM, Q 6 MONTH
     Route: 058
     Dates: start: 20230803
  6. ELIGARD [Suspect]
     Active Substance: LEUPROLIDE ACETATE
     Dosage: 45 MILLIGRAM, Q 6 MONTH
     Route: 058
     Dates: start: 20240118
  7. ELIGARD [Suspect]
     Active Substance: LEUPROLIDE ACETATE
     Dosage: 45 MILLIGRAM, Q 6 MONTH
     Route: 058
     Dates: start: 20240702
  8. APIXABAN [Concomitant]
     Active Substance: APIXABAN
     Indication: Anticoagulant therapy

REACTIONS (20)
  - Fibula fracture [Recovering/Resolving]
  - Traumatic fracture [Recovering/Resolving]
  - Urinary tract obstruction [Unknown]
  - Bone disorder [Unknown]
  - Lung disorder [Unknown]
  - Increased appetite [Unknown]
  - Intentional product use issue [Recovered/Resolved]
  - Micturition urgency [Unknown]
  - Urinary incontinence [Not Recovered/Not Resolved]
  - Pain [Unknown]
  - Injection site pain [Recovered/Resolved]
  - Haematuria [Unknown]
  - Dysuria [Unknown]
  - Weight increased [Unknown]
  - Hot flush [Unknown]
  - Gynaecomastia [Unknown]
  - Testicular atrophy [Unknown]
  - Back pain [Unknown]
  - Prostatic specific antigen increased [Recovered/Resolved]
  - Injection site mass [Not Recovered/Not Resolved]

NARRATIVE: CASE EVENT DATE: 20220201
